FAERS Safety Report 14006520 (Version 3)
Quarter: 2018Q4

REPORT INFORMATION
  Report Type: Report from Study
  Country: US (occurrence: US)
  Receive Date: 20170925
  Receipt Date: 20181129
  Transmission Date: 20190204
  Serious: Yes (Other)
  Sender: FDA-Public Use
  Company Number: PHEH2017US030738

PATIENT
  Sex: Male

DRUGS (3)
  1. LUMIGAN [Suspect]
     Active Substance: BIMATOPROST
     Indication: GLAUCOMA
     Dosage: 1 GTT, QHS, OD
     Route: 065
     Dates: start: 2009
  2. ALPHAGAN P [Suspect]
     Active Substance: BRIMONIDINE TARTRATE
     Indication: GLAUCOMA
     Dosage: 1 GTT, BID, OD
     Route: 065
     Dates: start: 2009
  3. AZOPT [Suspect]
     Active Substance: BRINZOLAMIDE
     Indication: GLAUCOMA
     Dosage: 1 GTT, BID (OD)
     Route: 065
     Dates: start: 2009

REACTIONS (12)
  - Blood pressure abnormal [Unknown]
  - Ocular hyperaemia [Unknown]
  - Visual impairment [Unknown]
  - Visual acuity reduced [Unknown]
  - Vision blurred [Unknown]
  - Diabetes mellitus [Unknown]
  - Atrial fibrillation [Unknown]
  - Blindness unilateral [Unknown]
  - Intraocular pressure increased [Unknown]
  - Glaucoma [Unknown]
  - Visual field defect [Unknown]
  - Eye pain [Unknown]
